FAERS Safety Report 9153765 (Version 1)
Quarter: 2013Q1

REPORT INFORMATION
  Report Type: Spontaneous
  Country: US (occurrence: None)
  Receive Date: 20130221
  Receipt Date: 20130221
  Transmission Date: 20140127
  Serious: Yes (Other)
  Sender: FDA-Public Use
  Company Number: 2013SA013178

PATIENT
  Age: 50 Year
  Sex: Female

DRUGS (1)
  1. ICY HOT POWER GEL [Suspect]
     Indication: BACK DISORDER
     Dates: start: 20130210

REACTIONS (3)
  - Chemical injury [None]
  - Burns second degree [None]
  - Pain [None]
